FAERS Safety Report 10769255 (Version 1)
Quarter: 2015Q1

REPORT INFORMATION
  Report Type: Spontaneous
  Country: US (occurrence: US)
  Receive Date: 20150206
  Receipt Date: 20150206
  Transmission Date: 20150721
  Serious: No
  Sender: FDA-Public Use
  Company Number: US-ASTRAZENECA-2015SE08755

PATIENT
  Age: 67 Year
  Sex: Female

DRUGS (6)
  1. LEVOTHYROXINE [Concomitant]
     Active Substance: LEVOTHYROXINE
  2. RAMIPRIL. [Concomitant]
     Active Substance: RAMIPRIL
  3. METOPROLOL /00376902/ [Concomitant]
     Active Substance: METOPROLOL
  4. METFORMIN [Concomitant]
     Active Substance: METFORMIN HYDROCHLORIDE
  5. BYETTA [Suspect]
     Active Substance: EXENATIDE
     Indication: TYPE 2 DIABETES MELLITUS
     Dosage: TWO TIMES A DAY
     Route: 058
     Dates: start: 2011, end: 201401
  6. BYDUREON [Suspect]
     Active Substance: EXENATIDE
     Indication: TYPE 2 DIABETES MELLITUS
     Route: 058
     Dates: start: 2014

REACTIONS (4)
  - Injection site haemorrhage [Recovered/Resolved]
  - Underdose [Recovered/Resolved]
  - Injection site extravasation [Recovered/Resolved]
  - Product quality issue [Recovered/Resolved]
